FAERS Safety Report 5126572-X (Version None)
Quarter: 2006Q4

REPORT INFORMATION
  Report Type: 
  Country: None (occurrence: None)
  Receive Date: 20061012
  Receipt Date: 20061012
  Transmission Date: 20070319
  Serious: No
  Sender: FDA-Public Use
  Company Number: None

PATIENT
  Age: 47 Year
  Sex: Female
  Weight: 81.6475 kg

DRUGS (1)
  1. CIPRO [Suspect]
     Indication: SINUSITIS
     Dosage: 250 MG.   2 PER DAY   PO
     Route: 048

REACTIONS (3)
  - CHONDROPATHY [None]
  - TENDON DISORDER [None]
  - TENDONITIS [None]
